FAERS Safety Report 15640717 (Version 6)
Quarter: 2023Q1

REPORT INFORMATION
  Report Type: Spontaneous
  Country: US (occurrence: US)
  Receive Date: 20181120
  Receipt Date: 20230322
  Transmission Date: 20230418
  Serious: Yes (Other)
  Sender: FDA-Public Use
  Company Number: US-PFIZER INC-2018474604

PATIENT
  Age: 7 Month
  Sex: Male

DRUGS (2)
  1. BENEFIX [Suspect]
     Active Substance: COAGULATION FACTOR IX RECOMBINANT HUMAN\ISOPROPYL ALCOHOL
     Indication: Factor IX deficiency
     Dosage: 1500 IU, DAILY (1500 UNITS (+5%) = 100 UNITS/KG DAILY ON DEMAND FOR A BLEED)
  2. BENEFIX [Suspect]
     Active Substance: COAGULATION FACTOR IX RECOMBINANT HUMAN\ISOPROPYL ALCOHOL
     Indication: Haemorrhage
     Dosage: 1700 IU, DAILY (AND THEN EVERY OTHER DAY UNTIL 24APR2021)
     Dates: start: 20210414

REACTIONS (3)
  - Haemorrhage [Unknown]
  - Haematoma [Unknown]
  - Fall [Unknown]
